FAERS Safety Report 9777963 (Version 2)
Quarter: 2013Q4

REPORT INFORMATION
  Report Type: Report from Study
  Country: JP (occurrence: JP)
  Receive Date: 20131223
  Receipt Date: 20131223
  Transmission Date: 20140711
  Serious: Yes (Hospitalization)
  Sender: FDA-Public Use
  Company Number: JP-JNJFOC-20131011586

PATIENT
  Age: 72 Year
  Sex: Male
  Weight: 51 kg

DRUGS (41)
  1. FENTANYL [Suspect]
     Indication: CANCER PAIN
     Route: 062
     Dates: start: 20130329
  2. FENTANYL [Suspect]
     Indication: CANCER PAIN
     Route: 062
     Dates: start: 20130326, end: 20130328
  3. FENTANYL [Suspect]
     Indication: CANCER PAIN
     Route: 062
     Dates: start: 20130322, end: 20130325
  4. LYRICA [Suspect]
     Indication: CANCER PAIN
     Route: 048
  5. MEDEPOLIN [Suspect]
     Indication: PSYCHOSOMATIC DISEASE
     Route: 048
     Dates: start: 20130510
  6. ZOMETA [Concomitant]
     Indication: CANCER PAIN
     Route: 065
     Dates: start: 20130523, end: 20130523
  7. BISACODYL [Concomitant]
     Indication: CONSTIPATION
     Route: 054
     Dates: start: 20130406
  8. LANTUS [Concomitant]
     Indication: DIABETES MELLITUS
     Route: 065
     Dates: end: 20130425
  9. LANTUS [Concomitant]
     Indication: DIABETES MELLITUS
     Route: 065
     Dates: start: 20130426, end: 20130506
  10. RASENAZOLIN [Concomitant]
     Indication: PROPHYLAXIS
     Route: 065
     Dates: start: 20130529, end: 20130603
  11. SUTENT [Concomitant]
     Indication: CANCER PAIN
     Route: 048
     Dates: start: 20130501, end: 20130513
  12. OXINORM (OXYCODONE HYDROCHLORIDE) [Concomitant]
     Indication: CANCER PAIN
     Dosage: RESCUE DOSE 10MG 1 TIME PER DAY
     Route: 048
     Dates: start: 20130330, end: 20130331
  13. OXINORM (OXYCODONE HYDROCHLORIDE) [Concomitant]
     Indication: CANCER PAIN
     Dosage: RESCUE DOSE 5MG 1 TIME PER DAY
     Route: 048
     Dates: start: 20130327, end: 20130327
  14. OXINORM (OXYCODONE HYDROCHLORIDE) [Concomitant]
     Indication: CANCER PAIN
     Dosage: RESCUE DOSE 5MG 2 TIMES PER DAY
     Route: 048
     Dates: start: 20130328, end: 20130329
  15. OXINORM (OXYCODONE HYDROCHLORIDE) [Concomitant]
     Indication: CANCER PAIN
     Dosage: RESCUE DOSE 10MG 2 TIMES PER DAY
     Route: 048
     Dates: start: 20130403, end: 20130403
  16. OXINORM (OXYCODONE HYDROCHLORIDE) [Concomitant]
     Indication: CANCER PAIN
     Dosage: RESCUE DOSE 5MG 2 TIMES PER
     Route: 048
     Dates: start: 20130325, end: 20130326
  17. OXINORM (OXYCODONE HYDROCHLORIDE) [Concomitant]
     Indication: CANCER PAIN
     Dosage: RESCUE DOSE 10MG 2 TIMES PER DAY
     Route: 048
     Dates: start: 20130401, end: 20130401
  18. OXINORM (OXYCODONE HYDROCHLORIDE) [Concomitant]
     Indication: CANCER PAIN
     Dosage: RESCUE DOSE 5MG 1 TIME PER DAY
     Route: 048
     Dates: start: 20130322, end: 20130324
  19. OXINORM (OXYCODONE HYDROCHLORIDE) [Concomitant]
     Indication: CANCER PAIN
     Dosage: RESCUE DOSE 10MG 1 TIME PER DAY
     Route: 048
     Dates: start: 20130402, end: 20130402
  20. OXINORM (OXYCODONE HYDROCHLORIDE) [Concomitant]
     Indication: CANCER PAIN
     Dosage: RESCUE DOSE 10MG 1 TIME PER DAY
     Route: 048
     Dates: start: 20130404, end: 20130404
  21. ATORVASTATIN [Concomitant]
     Indication: HYPERLIPIDAEMIA
     Route: 048
  22. ACETAMINOPHEN [Concomitant]
     Indication: CANCER PAIN
     Route: 048
  23. ESOMEPRAZOLE MAGNESIUM [Concomitant]
     Indication: PROPHYLAXIS
     Route: 048
  24. VONFENAC [Concomitant]
     Indication: CANCER PAIN
     Route: 054
  25. MAGNESIUM OXIDE [Concomitant]
     Indication: CONSTIPATION
     Route: 048
  26. HIRUDOID (HEPARINOID) [Concomitant]
     Indication: PRURITUS
     Route: 061
  27. SENNOSIDE [Concomitant]
     Indication: CONSTIPATION
     Route: 048
     Dates: start: 20130325
  28. NOVAMIN [Concomitant]
     Indication: VOMITING
     Route: 065
     Dates: start: 20130402, end: 20130428
  29. NOVAMIN [Concomitant]
     Indication: NAUSEA
     Route: 065
     Dates: start: 20130402, end: 20130428
  30. COSOPT EYE DROPS [Concomitant]
     Indication: GLAUCOMA
     Route: 047
  31. LUMIGAN [Concomitant]
     Indication: GLAUCOMA
     Route: 047
  32. NAUZELIN [Concomitant]
     Indication: VOMITING
     Route: 054
     Dates: start: 20130406
  33. NAUZELIN [Concomitant]
     Indication: NAUSEA
     Route: 054
     Dates: start: 20130406
  34. DOMPERIDONE [Concomitant]
     Indication: VOMITING
     Route: 048
     Dates: start: 20130426
  35. DOMPERIDONE [Concomitant]
     Indication: NAUSEA
     Route: 048
     Dates: start: 20130426
  36. TAIPERACILIN [Concomitant]
     Indication: PROPHYLAXIS
     Route: 065
     Dates: start: 20130418, end: 20130420
  37. CEFDINIR [Concomitant]
     Indication: PROPHYLAXIS
     Route: 048
     Dates: start: 20130529, end: 20130604
  38. NEXAVAR [Concomitant]
     Indication: CANCER PAIN
     Route: 048
     Dates: start: 20130607
  39. NOVORAPID [Concomitant]
     Indication: DIABETES MELLITUS
     Route: 058
     Dates: end: 20130425
  40. NOVORAPID [Concomitant]
     Indication: DIABETES MELLITUS
     Route: 058
     Dates: start: 20130426, end: 20130506
  41. ALOGLIPTIN BENZOATE [Concomitant]
     Indication: DIABETES MELLITUS
     Route: 048
     Dates: start: 20130517

REACTIONS (6)
  - Bradycardia [Recovering/Resolving]
  - Atrioventricular block second degree [Recovering/Resolving]
  - Sick sinus syndrome [Recovering/Resolving]
  - Psychosomatic disease [Recovering/Resolving]
  - Diarrhoea [Recovered/Resolved]
  - Drug intolerance [Unknown]
